FAERS Safety Report 5615750-9 (Version None)
Quarter: 2008Q1

REPORT INFORMATION
  Report Type: 
  Country: None (occurrence: None)
  Receive Date: 20080206
  Receipt Date: 20080201
  Transmission Date: 20080703
  Serious: Yes (Life-Threatening, Disabling, Other)
  Sender: FDA-Public Use
  Company Number: US-ALLERGAN-0801287US

PATIENT
  Sex: Male
  Weight: 18.141 kg

DRUGS (3)
  1. BOTOX [Suspect]
     Indication: MUSCLE SPASTICITY
     Dosage: UNK, SINGLE
     Route: 030
     Dates: start: 20000224, end: 20000224
  2. BOTOX [Suspect]
     Indication: CEREBRAL PALSY
  3. BOTOX [Suspect]
     Indication: AICARDI'S SYNDROME

REACTIONS (4)
  - BLINDNESS CORTICAL [None]
  - CONVULSION [None]
  - DEPRESSED LEVEL OF CONSCIOUSNESS [None]
  - RESPIRATORY DEPRESSION [None]
